FAERS Safety Report 7554310-X (Version None)
Quarter: 2011Q2

REPORT INFORMATION
  Report Type: 
  Country: None (occurrence: None)
  Receive Date: 20110617
  Receipt Date: 20110606
  Transmission Date: 20111010
  Serious: Yes (Other)
  Sender: FDA-Public Use
  Company Number: US-CELGENEUS-ABX06-05-0398

PATIENT
  Sex: Female
  Weight: 96.611 kg

DRUGS (9)
  1. COREG [Concomitant]
     Dosage: 12.5 MILLIGRAM
     Route: 065
  2. ABRAXANE [Suspect]
     Dosage: 265 MILLIGRAM
     Route: 041
     Dates: start: 20050815, end: 20050926
  3. SPIRONOLACTONE [Concomitant]
     Dosage: 25 MILLIGRAM
     Route: 065
  4. DIGOXIN [Concomitant]
     Dosage: .125 MILLIGRAM
     Route: 048
  5. ACCUPRIL [Concomitant]
     Dosage: 40 MG
     Route: 048
  6. WELLBUTRIN [Concomitant]
     Dosage: 150 MILLIGRAM
     Route: 048
  7. KLOR-CON [Concomitant]
     Dosage: 20 MILLIGRAM
     Route: 065
  8. EFFEXOR XR [Concomitant]
     Dosage: 150 MILLIGRAM
     Route: 048
  9. FUROSEMIDE [Concomitant]
     Dosage: 40 MILLIGRAM
     Route: 048

REACTIONS (1)
  - SUBCUTANEOUS ABSCESS [None]
